FAERS Safety Report 16462777 (Version 1)
Quarter: 2019Q2

REPORT INFORMATION
  Report Type: Spontaneous
  Country: US (occurrence: US)
  Receive Date: 20190512
  Receipt Date: 20190512
  Transmission Date: 20190711
  Serious: No
  Sender: FDA-Public Use
  Company Number: None

PATIENT
  Age: 43 Year
  Sex: Female

DRUGS (1)
  1. LUPRON DEPOT [Suspect]
     Active Substance: LEUPROLIDE ACETATE
     Dosage: ?          OTHER FREQUENCY:OTHER;?
     Route: 030
     Dates: start: 201904

REACTIONS (4)
  - Vaginal haemorrhage [None]
  - Abdominal distension [None]
  - Menstrual disorder [None]
  - Abdominal discomfort [None]

NARRATIVE: CASE EVENT DATE: 20190512
